FAERS Safety Report 18357953 (Version 4)
Quarter: 2020Q4

REPORT INFORMATION
  Report Type: Spontaneous
  Country: BR (occurrence: BR)
  Receive Date: 20201007
  Receipt Date: 20201220
  Transmission Date: 20210114
  Serious: Yes (Other)
  Sender: FDA-Public Use
  Company Number: BR-009507513-2010BRA002001

PATIENT
  Age: 70 Year
  Sex: Male
  Weight: 80 kg

DRUGS (11)
  1. BISOPROLOL [Concomitant]
     Active Substance: BISOPROLOL
     Indication: CARDIAC DISORDER
     Dosage: 5 MILLIGRAM, QD
     Route: 048
     Dates: start: 2019
  2. JANUVIA [Suspect]
     Active Substance: SITAGLIPTIN PHOSPHATE
     Dosage: UNK
     Route: 048
     Dates: start: 20200921, end: 20201001
  3. FUROSEMIDE. [Concomitant]
     Active Substance: FUROSEMIDE
     Indication: CARDIAC DISORDER
     Dosage: 40 MILLIGRAM (1 TABLET AT 8:00 AM AND 1 TABLET AT 4:00 PM)
     Route: 048
     Dates: start: 2019
  4. AAS [Concomitant]
     Active Substance: ASPIRIN
     Indication: CARDIAC DISORDER
     Dosage: 1 TABLET AT LUNCH
     Route: 048
  5. DIGOXIN. [Concomitant]
     Active Substance: DIGOXIN
     Indication: CARDIAC DISORDER
     Dosage: 0.25 MILLIGRAM, (1 TABLET AT LUNCH)
     Route: 048
     Dates: start: 2019
  6. ALPRAZOLAM. [Concomitant]
     Active Substance: ALPRAZOLAM
     Indication: DIABETES MELLITUS
     Dosage: 1 MILLIGRAM, QD
     Route: 048
     Dates: start: 2020
  7. JANUVIA [Suspect]
     Active Substance: SITAGLIPTIN PHOSPHATE
     Indication: DIABETES MELLITUS
     Dosage: 1 TABLET AT LUNCH, QD
     Route: 048
     Dates: start: 202009, end: 20200918
  8. PREGABALIN. [Concomitant]
     Active Substance: PREGABALIN
     Indication: DIABETIC NEUROPATHY
     Dosage: 50 MILLIGRAM, QD
     Route: 048
     Dates: start: 2020
  9. MERITOR [Concomitant]
     Active Substance: GLIMEPIRIDE\METFORMIN
     Indication: DIABETES MELLITUS
     Dosage: 4/1000 MG, 1 TABLET QD
     Route: 048
     Dates: start: 2020
  10. ALLOPURINOL. [Concomitant]
     Active Substance: ALLOPURINOL
     Indication: CARDIAC DISORDER
     Dosage: 300 MILLIGRAM, (1 TABLET AT 8:00 AM AND 1 TABLET AT 8:00 PM)
     Route: 048
     Dates: start: 2019
  11. LOSARTAN POTASSIUM. [Concomitant]
     Active Substance: LOSARTAN POTASSIUM
     Dosage: 50 MILLIGRAM (2 TABLETS AT 8:00 AM AND 2 TABLETS AT 8:00 PM)
     Route: 048
     Dates: start: 2019

REACTIONS (4)
  - Urinary retention [Recovered/Resolved]
  - Constipation [Not Recovered/Not Resolved]
  - Product dose omission issue [Unknown]
  - Constipation [Recovered/Resolved]

NARRATIVE: CASE EVENT DATE: 202009
